FAERS Safety Report 7598172 (Version 2)
Quarter: 2013Q4

REPORT INFORMATION
  Report Type: Report from Study
  Country: US (occurrence: US)
  Receive Date: 20100920
  Receipt Date: 20131010
  Transmission Date: 20140711
  Serious: Yes (Hospitalization)
  Sender: FDA-Public Use
  Company Number: US-ASTRAZENECA-2010SE22785

PATIENT
  Age: 56 Year
  Sex: Male
  Weight: 93.9 kg

DRUGS (21)
  1. SEROQUEL [Suspect]
     Indication: SCHIZOPHRENIA
     Route: 048
     Dates: start: 2006, end: 20100517
  2. SEROQUEL [Suspect]
     Indication: SCHIZOPHRENIA, PARANOID TYPE
     Route: 048
     Dates: start: 2006, end: 20100517
  3. SEROQUEL [Suspect]
     Indication: SCHIZOPHRENIA
     Route: 048
     Dates: end: 201204
  4. SEROQUEL [Suspect]
     Indication: SCHIZOPHRENIA, PARANOID TYPE
     Route: 048
     Dates: end: 201204
  5. SEROQUEL [Suspect]
     Indication: SCHIZOPHRENIA
     Dosage: 900 MG, DAILY, GENERIC
     Route: 048
     Dates: start: 201204, end: 201210
  6. SEROQUEL [Suspect]
     Indication: SCHIZOPHRENIA, PARANOID TYPE
     Dosage: 900 MG, DAILY, GENERIC
     Route: 048
     Dates: start: 201204, end: 201210
  7. SEROQUEL [Suspect]
     Indication: SCHIZOPHRENIA
     Route: 048
     Dates: start: 201210
  8. SEROQUEL [Suspect]
     Indication: SCHIZOPHRENIA, PARANOID TYPE
     Route: 048
     Dates: start: 201210
  9. CRESTOR [Suspect]
     Indication: BLOOD CHOLESTEROL ABNORMAL
     Dosage: DAILY
     Route: 048
  10. CRESTOR [Suspect]
     Indication: BLOOD CHOLESTEROL ABNORMAL
     Route: 048
  11. CRESTOR [Suspect]
     Indication: BLOOD CHOLESTEROL ABNORMAL
     Dosage: GENERIC
     Route: 048
  12. NEXIUM [Suspect]
     Indication: GASTROOESOPHAGEAL REFLUX DISEASE
     Route: 048
  13. NEXIUM [Suspect]
     Indication: GASTROOESOPHAGEAL REFLUX DISEASE
     Dosage: DAILY
     Route: 048
  14. NEXIUM [Suspect]
     Indication: GASTROOESOPHAGEAL REFLUX DISEASE
     Dosage: GENERIC
     Route: 048
  15. CELEXA [Concomitant]
  16. RITALIN [Concomitant]
  17. DIAZEPAM [Concomitant]
  18. KLONOPIN [Concomitant]
     Indication: ANXIETY
     Route: 048
  19. METFORMIN [Concomitant]
     Indication: BLOOD GLUCOSE INCREASED
     Dosage: DAILY
     Route: 048
  20. ASPIRIN [Concomitant]
     Indication: PROPHYLAXIS
     Route: 048
  21. VITAMIN E [Concomitant]
     Dosage: DAILY
     Route: 048

REACTIONS (14)
  - Emotional disorder [Recovered/Resolved]
  - Mental disorder [Recovered/Resolved]
  - Blood cholesterol increased [Unknown]
  - Blood glucose increased [Unknown]
  - Anxiety [Unknown]
  - Aggression [Unknown]
  - Schizophrenia [Unknown]
  - Thinking abnormal [Unknown]
  - Gastrooesophageal reflux disease [Unknown]
  - Oesophageal ulcer [Unknown]
  - Adverse event [Unknown]
  - Drug ineffective [Unknown]
  - Drug dose omission [Unknown]
  - Off label use [Unknown]
